FAERS Safety Report 15691268 (Version 2)
Quarter: 2020Q1

REPORT INFORMATION
  Report Type: Report from Study
  Country: US (occurrence: US)
  Receive Date: 20181205
  Receipt Date: 20200127
  Transmission Date: 20200409
  Serious: No
  Sender: FDA-Public Use
  Company Number: US-SA-2018SA331127

PATIENT
  Age: 54 Year
  Sex: Female

DRUGS (2)
  1. MELATONIN [Concomitant]
     Active Substance: MELATONIN
     Indication: INITIAL INSOMNIA
     Route: 065
  2. TERIFLUNOMIDE. [Suspect]
     Active Substance: TERIFLUNOMIDE
     Dosage: 14 MG, QD
     Route: 048
     Dates: start: 201807

REACTIONS (4)
  - Pruritus [Unknown]
  - Oral herpes [Unknown]
  - Condition aggravated [Unknown]
  - Candida infection [Unknown]

NARRATIVE: CASE EVENT DATE: 20181128
